FAERS Safety Report 8854415 (Version 4)
Quarter: 2014Q2

REPORT INFORMATION
  Report Type: Spontaneous
  Country: US (occurrence: US)
  Receive Date: 20121023
  Receipt Date: 20140403
  Transmission Date: 20141212
  Serious: Yes (Hospitalization, Disabling)
  Sender: FDA-Public Use
  Company Number: US-ASTRAZENECA-2012SE77893

PATIENT
  Age: 52 Year
  Sex: Male

DRUGS (2)
  1. RHINOCORT AQUA [Suspect]
     Route: 045
  2. RHINOCORT AQUA [Suspect]
     Route: 045

REACTIONS (6)
  - Musculoskeletal disorder [Unknown]
  - Dyspnoea [Unknown]
  - Pain [Unknown]
  - Stress [Unknown]
  - Intentional product misuse [Unknown]
  - Drug dose omission [Unknown]
